FAERS Safety Report 15239558 (Version 3)
Quarter: 2018Q3

REPORT INFORMATION
  Report Type: Spontaneous
  Country: IT (occurrence: IT)
  Receive Date: 20180803
  Receipt Date: 20180827
  Transmission Date: 20181010
  Serious: Yes (Hospitalization)
  Sender: FDA-Public Use
  Company Number: IT-TEVA-2018-IT-933692

PATIENT
  Age: 11 Year
  Sex: Female

DRUGS (20)
  1. FLUCONAZOLE. [Concomitant]
     Active Substance: FLUCONAZOLE
     Dosage: 350 MILLIGRAM DAILY;
     Route: 065
  2. EMEND [Concomitant]
     Active Substance: APREPITANT
     Route: 065
     Dates: start: 20171111, end: 20171113
  3. ALOXI 500 MICROGRAMS SOFT CAPSULES [Concomitant]
     Route: 065
     Dates: start: 20171111
  4. ENDOXAN BAXTER [Suspect]
     Active Substance: CYCLOPHOSPHAMIDE
     Indication: ALLOGENIC BONE MARROW TRANSPLANTATION THERAPY
     Dosage: 3300 MILLIGRAM DAILY;
     Route: 042
     Dates: start: 20171113, end: 20171114
  5. SANDIMMUN [Concomitant]
     Active Substance: CYCLOSPORINE
     Dosage: 180 MILLIGRAM DAILY;
     Route: 065
     Dates: start: 20171113
  6. RANITIDINE. [Concomitant]
     Active Substance: RANITIDINE
     Dosage: 150 MILLIGRAM DAILY;
     Route: 042
  7. NYSTATIN. [Concomitant]
     Active Substance: NYSTATIN
     Dosage: 15 ML DAILY;
     Route: 065
  8. URSODEOXYCHOLIC ACID [Concomitant]
     Active Substance: URSODIOL
     Dosage: 600 MILLIGRAM DAILY;
     Route: 065
  9. CIPROFLOXACIN. [Concomitant]
     Active Substance: CIPROFLOXACIN
     Dosage: 1000 MILLIGRAM DAILY;
     Route: 048
     Dates: start: 20171110, end: 20171115
  10. UROMITEXAN [Concomitant]
     Active Substance: MESNA
     Route: 065
     Dates: start: 20171115
  11. ANTRA [Concomitant]
     Active Substance: OMEPRAZOLE
     Dosage: 40 MILLIGRAM DAILY;
     Route: 042
  12. URBASON [Concomitant]
     Active Substance: METHYLPREDNISOLONE
     Dosage: 40 MILLIGRAM DAILY;
     Route: 042
     Dates: start: 20171114
  13. METHOTREXATE. [Suspect]
     Active Substance: METHOTREXATE
     Route: 042
     Dates: start: 20171119, end: 20171124
  14. TACHIPIRINA [Concomitant]
     Active Substance: ACETAMINOPHEN
     Dosage: 1 GRAM DAILY;
     Route: 048
  15. TRIMETON [Concomitant]
     Active Substance: CHLORPHENIRAMINE MALEATE
     Dosage: 2 DOSAGE FORMS DAILY;
     Route: 042
  16. LASIX [Concomitant]
     Active Substance: FUROSEMIDE
     Dosage: 108 MILLIGRAM DAILY;
     Route: 042
     Dates: start: 20171110
  17. THIOTEPA. [Suspect]
     Active Substance: THIOTEPA
     Indication: ALLOGENIC BONE MARROW TRANSPLANTATION THERAPY
     Dosage: 275 MILLIGRAM DAILY;
     Route: 042
     Dates: start: 20171111, end: 20171112
  18. ANTI?THYMOCYTE GLOBULIN (RABBIT) NOS [Suspect]
     Active Substance: LAPINE T-LYMPHOCYTE IMMUNE GLOBULIN
     Dosage: 137.5 MILLIGRAM DAILY;
     Route: 042
     Dates: start: 20171113, end: 20171115
  19. ACICLOVIR [Concomitant]
     Active Substance: ACYCLOVIR
     Route: 048
     Dates: start: 20171110, end: 20171113
  20. ACICLOVIR [Concomitant]
     Active Substance: ACYCLOVIR
     Dosage: 180 MILLIGRAM DAILY;
     Route: 042
     Dates: start: 20171114, end: 20171211

REACTIONS (3)
  - Ejection fraction decreased [Recovered/Resolved]
  - Epistaxis [Recovered/Resolved]
  - Mucosal inflammation [Recovered/Resolved]

NARRATIVE: CASE EVENT DATE: 20171121
